FAERS Safety Report 5838731-9 (Version None)
Quarter: 2008Q3

REPORT INFORMATION
  Report Type: 
  Country: None (occurrence: None)
  Receive Date: 20080808
  Receipt Date: 20080806
  Transmission Date: 20090109
  Serious: Yes (Other)
  Sender: FDA-Public Use
  Company Number: D0058234A

PATIENT
  Age: 28 Year
  Sex: Female
  Weight: 69 kg

DRUGS (3)
  1. MALARONE [Suspect]
     Indication: PROPHYLAXIS
     Dosage: 350MG PER DAY
     Route: 048
     Dates: start: 20080326, end: 20080331
  2. LAMICTAL [Concomitant]
     Indication: EPILEPSY
     Dosage: 125MG PER DAY
     Route: 048
     Dates: start: 20070501
  3. KEPPRA [Concomitant]
     Indication: EPILEPSY
     Dosage: 3000MG PER DAY
     Route: 048
     Dates: start: 20070501

REACTIONS (1)
  - LICHEN PLANUS [None]
